FAERS Safety Report 17215837 (Version 1)
Quarter: 2019Q4

REPORT INFORMATION
  Report Type: Spontaneous
  Country: PT (occurrence: AO)
  Receive Date: 20191230
  Receipt Date: 20191230
  Transmission Date: 20200122
  Serious: Yes (Hospitalization)
  Sender: FDA-Public Use
  Company Number: PT-GALDERMA-PT19077452

PATIENT
  Age: 59 Year
  Sex: Male

DRUGS (2)
  1. QUININE [Concomitant]
     Active Substance: QUININE
     Indication: MALARIA
     Route: 065
  2. DOXYCYCLINE. [Suspect]
     Active Substance: DOXYCYCLINE
     Indication: MALARIA
     Route: 065

REACTIONS (2)
  - Headache [Recovered/Resolved]
  - Product use in unapproved indication [Recovered/Resolved]
